FAERS Safety Report 6127794-1 (Version None)
Quarter: 2009Q1

REPORT INFORMATION
  Report Type: 
  Country: None (occurrence: None)
  Receive Date: 20090320
  Receipt Date: 20090320
  Transmission Date: 20090719
  Serious: Yes (Other)
  Sender: FDA-Public Use
  Company Number: None

PATIENT
  Sex: Female

DRUGS (1)
  1. ALDARA [Suspect]
     Indication: BASAL CELL CARCINOMA
     Dosage: QOD TOPIC
     Route: 061
     Dates: start: 20090101, end: 20090201

REACTIONS (4)
  - DIARRHOEA [None]
  - FATIGUE [None]
  - MENTAL STATUS CHANGES [None]
  - SKIN LESION [None]
